FAERS Safety Report 21864833 (Version 2)
Quarter: 2024Q1

REPORT INFORMATION
  Report Type: Spontaneous
  Country: FR (occurrence: FR)
  Receive Date: 20230116
  Receipt Date: 20240122
  Transmission Date: 20240410
  Serious: Yes (Hospitalization, Other)
  Sender: FDA-Public Use
  Company Number: FR-002147023-NVSC2022FR287944

PATIENT
  Age: 57 Year
  Sex: Female

DRUGS (2)
  1. LETROZOLE [Suspect]
     Active Substance: LETROZOLE
     Indication: Breast cancer metastatic
     Dosage: UNK
     Route: 048
     Dates: start: 20221005
  2. KISQALI [Suspect]
     Active Substance: RIBOCICLIB
     Indication: Breast cancer metastatic
     Dosage: 600 MILLIGRAM
     Route: 048
     Dates: start: 20221005, end: 20221020

REACTIONS (10)
  - Hepatitis [Unknown]
  - Cholestasis [Recovering/Resolving]
  - Hepatic cytolysis [Recovering/Resolving]
  - Fatigue [Unknown]
  - Jaundice [Unknown]
  - Faeces pale [Unknown]
  - Nausea [Unknown]
  - Cell death [Recovering/Resolving]
  - Decreased appetite [Unknown]
  - Chromaturia [Unknown]

NARRATIVE: CASE EVENT DATE: 20221020
